FAERS Safety Report 6706937-2 (Version None)
Quarter: 2010Q2

REPORT INFORMATION
  Report Type: 
  Country: None (occurrence: None)
  Receive Date: 20100503
  Receipt Date: 20100426
  Transmission Date: 20101027
  Serious: Yes (Hospitalization)
  Sender: FDA-Public Use
  Company Number: GB-ROCHE-698018

PATIENT
  Sex: Female

DRUGS (3)
  1. CAPECITABINE [Suspect]
     Indication: BREAST CANCER
     Dosage: FREQUENCY: DAILY, LAST DOSE PRIOR TO SAE: 02 MARCH 2007
     Route: 048
     Dates: start: 20061031
  2. EPIRUBICIN [Suspect]
     Indication: BREAST CANCER
     Dosage: CYCLE 1: 28/09/06, CYCLE 2: 12/10/06, CYCLE 3: 30/10/06, CYCLE 4: 13/11/06.
     Route: 065
     Dates: start: 20060928
  3. PEGFILGRASTIM [Suspect]
     Indication: BREAST CANCER
     Dosage: CYCLE 1: 29/09/06, CYCLE 2: 13/10/06, CYCLE 3: 30/10/06, CYCLE 4:14/11/06.
     Route: 065
     Dates: start: 20060928

REACTIONS (1)
  - ERYTHEMA NODOSUM [None]
